FAERS Safety Report 7989263-3 (Version None)
Quarter: 2011Q4

REPORT INFORMATION
  Report Type: 
  Country: None (occurrence: None)
  Receive Date: 20111216
  Receipt Date: 20111216
  Transmission Date: 20120403
  Serious: Yes (Hospitalization)
  Sender: FDA-Public Use
  Company Number: None

PATIENT
  Sex: Female
  Weight: 61.3 kg

DRUGS (1)
  1. INTRON A [Suspect]
     Dosage: 34 MU

REACTIONS (1)
  - BLOOD PHOSPHORUS ABNORMAL [None]
